FAERS Safety Report 9038055 (Version 1)
Quarter: 2013Q1

REPORT INFORMATION
  Report Type: Spontaneous
  Country: US (occurrence: US)
  Receive Date: 20130129
  Receipt Date: 20130129
  Transmission Date: 20140127
  Serious: Yes (Other)
  Sender: FDA-Public Use
  Company Number: US-ABBOTT-12P-163-0925287-00

PATIENT
  Age: 62 None
  Sex: Male
  Weight: 119.86 kg

DRUGS (11)
  1. HUMIRA 40 MG/ 0.8 ML PRE-FILLED SYRINGE [Suspect]
     Indication: PSORIATIC ARTHROPATHY
     Dates: start: 201006, end: 201202
  2. METHOTREXATE [Concomitant]
     Indication: PSORIATIC ARTHROPATHY
  3. QUINAPRIL [Concomitant]
     Indication: PRODUCT USED FOR UNKNOWN INDICATION
  4. FOLIC ACID [Concomitant]
     Indication: VITAMIN SUPPLEMENTATION
  5. LIPITOR [Concomitant]
     Indication: PRODUCT USED FOR UNKNOWN INDICATION
  6. PLAVIX [Concomitant]
     Indication: PRODUCT USED FOR UNKNOWN INDICATION
  7. VITAMINE E [Concomitant]
     Indication: VITAMIN SUPPLEMENTATION
  8. FLAXSEED OIL [Concomitant]
     Indication: SUPPLEMENTATION THERAPY
  9. INSULIN [Concomitant]
     Indication: DIABETES MELLITUS
  10. VITAMIN C [Concomitant]
     Indication: VITAMIN SUPPLEMENTATION
  11. FISH OIL [Concomitant]
     Indication: VITAMIN SUPPLEMENTATION

REACTIONS (3)
  - Prostate cancer [Unknown]
  - Prostatitis [Recovered/Resolved]
  - Prostate infection [Recovered/Resolved]
